FAERS Safety Report 4982037-7 (Version None)
Quarter: 2006Q2

REPORT INFORMATION
  Report Type: 
  Country: None (occurrence: None)
  Receive Date: 20060424
  Receipt Date: 20060424
  Transmission Date: 20061013
  Serious: Yes (Death, Life-Threatening, Hospitalization)
  Sender: FDA-Public Use
  Company Number: None

PATIENT
  Age: 87 Year
  Sex: Male
  Weight: 68.0396 kg

DRUGS (4)
  1. MIRTAZAPINE [Suspect]
     Indication: DELIRIUM
     Dosage: 15 MG    1 PER DAY   PO
     Route: 048
     Dates: start: 20060306, end: 20060307
  2. MIRTAZAPINE [Suspect]
     Indication: DEMENTIA ALZHEIMER'S TYPE
     Dosage: 15 MG    1 PER DAY   PO
     Route: 048
     Dates: start: 20060306, end: 20060307
  3. RISPERDAL [Suspect]
     Indication: DELIRIUM
     Dosage: .25 MG   1 PER DAY    PO
     Route: 048
     Dates: start: 20060306, end: 20060307
  4. RISPERDAL [Suspect]
     Indication: DEMENTIA ALZHEIMER'S TYPE
     Dosage: .25 MG   1 PER DAY    PO
     Route: 048
     Dates: start: 20060306, end: 20060307

REACTIONS (13)
  - ABNORMAL BEHAVIOUR [None]
  - ACTIVITIES OF DAILY LIVING IMPAIRED [None]
  - AGGRESSION [None]
  - DEHYDRATION [None]
  - DEPRESSED LEVEL OF CONSCIOUSNESS [None]
  - DIFFICULTY IN WALKING [None]
  - DYSPHAGIA [None]
  - FLUID INTAKE REDUCED [None]
  - MUSCLE SPASMS [None]
  - MUSCLE TWITCHING [None]
  - ORAL INTAKE REDUCED [None]
  - PNEUMONIA [None]
  - SOMNOLENCE [None]
